FAERS Safety Report 4933144-6 (Version None)
Quarter: 2006Q1

REPORT INFORMATION
  Report Type: 
  Country: None (occurrence: None)
  Receive Date: 20060118
  Receipt Date: 20051110
  Transmission Date: 20060701
  Serious: Yes (Other)
  Sender: FDA-Public Use
  Company Number: US-JNJFOC-20051006141

PATIENT
  Age: 54 Year
  Sex: Female
  Weight: 90.7194 kg

DRUGS (4)
  1. DOXIL [Suspect]
     Indication: BREAST CANCER METASTATIC
     Dosage: 50 MG, 1 IN 3 WEEK, INTRAVENOUS
     Route: 042
     Dates: start: 20010701, end: 20020701
  2. LASIX [Concomitant]
  3. ANAPROX [Concomitant]
  4. ARIMIDEX [Concomitant]

REACTIONS (2)
  - AMNESIA [None]
  - BREAST CANCER METASTATIC [None]
